FAERS Safety Report 13964076 (Version 1)
Quarter: 2017Q3

REPORT INFORMATION
  Report Type: Spontaneous
  Country: US (occurrence: US)
  Receive Date: 20170913
  Receipt Date: 20170913
  Transmission Date: 20171128
  Serious: Yes (Life-Threatening, Other)
  Sender: FDA-Public Use
  Company Number: US-BAYER-2017-167355

PATIENT
  Sex: Female

DRUGS (3)
  1. ACETYLSALICYLIC ACID({=100 MG) [Suspect]
     Active Substance: ASPIRIN
     Dosage: UNK
     Route: 064
  2. ENOXAPARIN [Suspect]
     Active Substance: ENOXAPARIN
     Dosage: 40 MG, ONCE
     Route: 058
  3. EPINEPHRINE. [Suspect]
     Active Substance: EPINEPHRINE

REACTIONS (19)
  - Intraventricular haemorrhage neonatal [None]
  - Atrioventricular block complete [None]
  - Neonatal respiratory distress syndrome [None]
  - Cholestasis [None]
  - Patent ductus arteriosus [None]
  - Low birth weight baby [None]
  - Renal failure [None]
  - Renal vascular thrombosis [None]
  - Aortic thrombosis [None]
  - Labelled drug-drug interaction medication error [None]
  - Hypotension [None]
  - Pulmonary hypertension [None]
  - Transverse sinus thrombosis [None]
  - Bradycardia foetal [None]
  - Premature baby [None]
  - Necrotising colitis [None]
  - Ventricular extrasystoles [None]
  - Drug administration error [None]
  - Foetal exposure during pregnancy [None]
